FAERS Safety Report 24847037 (Version 1)
Quarter: 2025Q1

REPORT INFORMATION
  Report Type: Report from Study
  Country: US (occurrence: US)
  Receive Date: 20250115
  Receipt Date: 20250115
  Transmission Date: 20250408
  Serious: Yes (Other)
  Sender: NOVARTIS
  Company Number: US-002147023-NVSC2025US004570

PATIENT
  Sex: Male

DRUGS (1)
  1. FABHALTA [Suspect]
     Active Substance: IPTACOPAN HYDROCHLORIDE
     Indication: IgA nephropathy
     Dosage: 200 MG, BID
     Route: 048

REACTIONS (5)
  - Abscess jaw [Unknown]
  - Infection [Unknown]
  - Feeling abnormal [Unknown]
  - Glomerular filtration rate abnormal [Unknown]
  - Abscess [Unknown]
